FAERS Safety Report 5136672-6 (Version None)
Quarter: 2006Q4

REPORT INFORMATION
  Report Type: 
  Country: None (occurrence: None)
  Receive Date: 20061027
  Receipt Date: 20061017
  Transmission Date: 20070319
  Serious: Yes (Death)
  Sender: FDA-Public Use
  Company Number: NO-MERCK-0610NOR00017

PATIENT
  Age: 63 Year
  Sex: Female

DRUGS (2)
  1. DECADRON [Suspect]
     Indication: METASTASES TO CENTRAL NERVOUS SYSTEM
     Route: 065
     Dates: start: 20060101, end: 20060201
  2. ASPIRIN AND MAGNESIUM OXIDE [Suspect]
     Indication: CEREBROVASCULAR ACCIDENT
     Route: 048
     Dates: start: 20051227, end: 20060201

REACTIONS (1)
  - DUODENAL ULCER HAEMORRHAGE [None]
